FAERS Safety Report 16635208 (Version 1)
Quarter: 2019Q3

REPORT INFORMATION
  Report Type: Spontaneous
  Country: US (occurrence: US)
  Receive Date: 20190726
  Receipt Date: 20190726
  Transmission Date: 20191004
  Serious: No
  Sender: FDA-Public Use
  Company Number: US-ACCORD-070863

PATIENT
  Age: 73 Year
  Sex: Female

DRUGS (1)
  1. LETROZOLE. [Suspect]
     Active Substance: LETROZOLE
     Indication: BREAST CANCER
     Dosage: DOSE: 2.5 MG TWICE DAILY
     Route: 048

REACTIONS (4)
  - Myalgia [Unknown]
  - Back pain [Unknown]
  - Condition aggravated [Unknown]
  - Arthralgia [Unknown]
